FAERS Safety Report 20531379 (Version 2)
Quarter: 2022Q2

REPORT INFORMATION
  Report Type: Spontaneous
  Country: US (occurrence: US)
  Receive Date: 20220301
  Receipt Date: 20220405
  Transmission Date: 20220721
  Serious: No
  Sender: FDA-Public Use
  Company Number: US-SA-SAC20220221000608

PATIENT
  Sex: Female

DRUGS (1)
  1. DUPIXENT [Suspect]
     Active Substance: DUPILUMAB
     Indication: Dermatitis atopic
     Dosage: UNK
     Route: 058
     Dates: start: 202108, end: 202201

REACTIONS (6)
  - Exfoliative rash [Unknown]
  - Dry skin [Unknown]
  - Dermatitis [Unknown]
  - Rash pruritic [Unknown]
  - Pain of skin [Unknown]
  - Treatment failure [Unknown]
